FAERS Safety Report 9100064 (Version 2)
Quarter: 2013Q1

REPORT INFORMATION
  Report Type: Spontaneous
  Country: AT (occurrence: AT)
  Receive Date: 20130215
  Receipt Date: 20130218
  Transmission Date: 20140127
  Serious: Yes (Hospitalization)
  Sender: FDA-Public Use
  Company Number: AT-ASTRAZENECA-2013SE09260

PATIENT
  Age: 65 Year
  Sex: Female
  Weight: 57.4 kg

DRUGS (14)
  1. SEROQUEL [Suspect]
     Indication: MAJOR DEPRESSION
     Route: 048
  2. TRITACE [Suspect]
     Dosage: 2.5, DAILY
     Route: 065
     Dates: end: 20130201
  3. VENLAFAB [Suspect]
     Dosage: 150, DAILY
     Route: 065
     Dates: start: 20130109, end: 20130118
  4. VENLAFAB [Suspect]
     Dosage: 300, DAILY
     Route: 065
     Dates: start: 20130119
  5. RISPERDAL [Suspect]
     Dosage: 3, DAILY
     Route: 065
     Dates: end: 20130116
  6. RISPERDAL [Suspect]
     Dosage: 2, DAILY
     Route: 065
     Dates: start: 20130117, end: 20130128
  7. QUILONORM [Suspect]
     Indication: DEPRESSION
     Route: 065
     Dates: start: 20121228, end: 20130102
  8. QUILONORM [Suspect]
     Indication: DEPRESSION
     Route: 065
     Dates: start: 20130103, end: 20130124
  9. QUILONORM [Suspect]
     Indication: DEPRESSION
     Route: 065
     Dates: start: 20130124
  10. CIPRALEX [Concomitant]
     Dosage: 10, DAILY
     Dates: start: 20130114
  11. LAMICTAL [Concomitant]
     Dosage: 40, DAILY
     Dates: start: 20130117
  12. EUTHYROX [Concomitant]
  13. PANTOLOC [Concomitant]
     Dosage: 40, DAILY
  14. EDRONAX [Concomitant]
     Dosage: 4, DAILY
     Dates: start: 20120122

REACTIONS (3)
  - Ventricular extrasystoles [Not Recovered/Not Resolved]
  - Blood cholesterol increased [None]
  - Glomerular filtration rate increased [None]
